FAERS Safety Report 7773217-6 (Version None)
Quarter: 2011Q3

REPORT INFORMATION
  Report Type: 
  Country: None (occurrence: None)
  Receive Date: 20110922
  Receipt Date: 20110916
  Transmission Date: 20111222
  Serious: Yes (Other)
  Sender: FDA-Public Use
  Company Number: US-SANOFI-AVENTIS-2011SA061203

PATIENT
  Age: 56 Year
  Sex: Female
  Weight: 86 kg

DRUGS (4)
  1. CRESTOR [Concomitant]
  2. ZYRTEC [Concomitant]
  3. PLAVIX [Suspect]
     Indication: STENT PLACEMENT
     Route: 048
     Dates: start: 20090605
  4. ASPIRIN [Concomitant]
     Route: 048

REACTIONS (6)
  - CORONARY ARTERY OCCLUSION [None]
  - CONTUSION [None]
  - PRODUCT QUALITY ISSUE [None]
  - INSOMNIA [None]
  - EPISTAXIS [None]
  - FATIGUE [None]
